FAERS Safety Report 16770343 (Version 2)
Quarter: 2019Q3

REPORT INFORMATION
  Report Type: Report from Study
  Country: US (occurrence: US)
  Receive Date: 20190904
  Receipt Date: 20190914
  Transmission Date: 20191005
  Serious: Yes (Death, Hospitalization)
  Sender: FDA-Public Use
  Company Number: US-TEVA-2019-US-1059417

PATIENT
  Sex: Male

DRUGS (1)
  1. CLOZAPINE TEVA [Suspect]
     Active Substance: CLOZAPINE
     Indication: SCHIZOAFFECTIVE DISORDER BIPOLAR TYPE
     Route: 048
     Dates: start: 20190522

REACTIONS (5)
  - Death [Fatal]
  - Abdominal discomfort [Unknown]
  - Pneumonia [Unknown]
  - Small intestinal obstruction [Unknown]
  - Gastrointestinal sounds abnormal [Unknown]
